FAERS Safety Report 8843022 (Version 1)
Quarter: 2012Q4

REPORT INFORMATION
  Report Type: 
  Country: US (occurrence: US)
  Receive Date: 20121016
  Receipt Date: 20121016
  Transmission Date: 20130627
  Serious: Yes (Hospitalization)
  Sender: FDA-Public Use
  Company Number: US-GLAXOSMITHKLINE-A0818024A

PATIENT
  Age: 54 Year
  Sex: Female
  Weight: 91.4 kg

DRUGS (1)
  1. AVANDIA [Suspect]
     Indication: DIABETES MELLITUS
     Dosage: 8MG Per day
     Route: 048
     Dates: start: 2000, end: 2008

REACTIONS (2)
  - Coronary artery bypass [Not Recovered/Not Resolved]
  - Angina pectoris [Unknown]
